FAERS Safety Report 5816812-3 (Version None)
Quarter: 2008Q3

REPORT INFORMATION
  Report Type: 
  Country: None (occurrence: None)
  Receive Date: 20080721
  Receipt Date: 20080711
  Transmission Date: 20090109
  Serious: Yes (Hospitalization)
  Sender: FDA-Public Use
  Company Number: FR-ELI_LILLY_AND_COMPANY-FR200807002113

PATIENT
  Sex: Female

DRUGS (4)
  1. PROZAC [Suspect]
     Indication: DEPRESSION
     Route: 048
     Dates: end: 20060704
  2. ACTISOUFRE [Interacting]
     Dates: end: 20060704
  3. CEFACLOR [Interacting]
     Dosage: UNK, UNK
     Dates: end: 20060704
  4. RHINUREFLEX [Interacting]
     Dates: end: 20060704

REACTIONS (3)
  - DYSPNOEA [None]
  - OBSTRUCTIVE AIRWAYS DISORDER [None]
  - SINUS TACHYCARDIA [None]
